FAERS Safety Report 12391463 (Version 2)
Quarter: 2016Q3

REPORT INFORMATION
  Report Type: Spontaneous
  Country: FR (occurrence: FR)
  Receive Date: 20160521
  Receipt Date: 20160819
  Transmission Date: 20161109
  Serious: Yes (Life-Threatening, Hospitalization)
  Sender: FDA-Public Use
  Company Number: FR-ABBVIE-16K-056-1631680-00

PATIENT
  Age: 41 Year
  Sex: Female

DRUGS (2)
  1. LERCAN [Concomitant]
     Active Substance: LERCANIDIPINE
     Indication: HYPERTENSION
  2. HUMIRA [Suspect]
     Active Substance: ADALIMUMAB
     Indication: ANKYLOSING SPONDYLITIS
     Route: 058
     Dates: start: 2013, end: 20150422

REACTIONS (7)
  - Nausea [Unknown]
  - Hypoxia [Recovering/Resolving]
  - Tachypnoea [Recovering/Resolving]
  - Tachycardia [Unknown]
  - Pneumonia [Recovered/Resolved]
  - Pleural effusion [Unknown]
  - Choking sensation [Unknown]

NARRATIVE: CASE EVENT DATE: 201603
